FAERS Safety Report 17827061 (Version 7)
Quarter: 2020Q3

REPORT INFORMATION
  Report Type: Spontaneous
  Country: US (occurrence: US)
  Receive Date: 20200526
  Receipt Date: 20200826
  Transmission Date: 20201102
  Serious: Yes (Hospitalization, Other)
  Sender: FDA-Public Use
  Company Number: NVSC2020US140890

PATIENT
  Age: 20 Year
  Sex: Female
  Weight: 68 kg

DRUGS (7)
  1. CELEBREX [Concomitant]
     Active Substance: CELECOXIB
     Indication: PAIN
     Dosage: 200 MG, BID
     Route: 065
  2. TORADOL [Concomitant]
     Active Substance: KETOROLAC TROMETHAMINE
     Indication: PRODUCT USED FOR UNKNOWN INDICATION
     Dosage: 30 MG, UNKNOWN
     Route: 065
  3. PERCOCET [Concomitant]
     Active Substance: ACETAMINOPHEN\OXYCODONE HYDROCHLORIDE
     Indication: PAIN
     Dosage: 3?4 DF, QD
     Route: 065
  4. ADAKVEO [Suspect]
     Active Substance: CRIZANLIZUMAB-TMCA
     Indication: SICKLE CELL DISEASE
     Dosage: 5 MG/KG, QMO (INTO BLOODSTREAM VIA VEIN)
     Route: 042
     Dates: start: 20200504
  5. ADAKVEO [Suspect]
     Active Substance: CRIZANLIZUMAB-TMCA
     Dosage: 344 MG, UNKNOWN (TOTAL VOLUME OF INFUSED 42.3 ML)
     Route: 042
     Dates: start: 20200518, end: 20200518
  6. VITAMIN D [Concomitant]
     Active Substance: VITAMIN D NOS
     Indication: PRODUCT USED FOR UNKNOWN INDICATION
     Dosage: 50000 IU, QW
     Route: 065
  7. LYRICA [Concomitant]
     Active Substance: PREGABALIN
     Indication: PRODUCT USED FOR UNKNOWN INDICATION
     Dosage: UNK
     Route: 065

REACTIONS (11)
  - Crying [Unknown]
  - Back pain [Recovered/Resolved]
  - Sickle cell anaemia with crisis [Recovered/Resolved]
  - Hypoxia [Unknown]
  - Hypertension [Unknown]
  - Arthralgia [Recovered/Resolved]
  - Tachycardia [Unknown]
  - Headache [Unknown]
  - Pain [Recovered/Resolved]
  - Screaming [Unknown]
  - Somnolence [Unknown]

NARRATIVE: CASE EVENT DATE: 20200518
